FAERS Safety Report 4739814-7 (Version None)
Quarter: 2005Q3

REPORT INFORMATION
  Report Type: 
  Country: None (occurrence: None)
  Receive Date: 20050810
  Receipt Date: 20050516
  Transmission Date: 20060218
  Serious: No
  Sender: FDA-Public Use
  Company Number: US-GLAXOSMITHKLINE-A0558802A

PATIENT
  Sex: Female

DRUGS (3)
  1. PAROXETINE HCL [Suspect]
     Dosage: 40MG UNKNOWN
     Route: 048
  2. PAXIL [Suspect]
     Dosage: 40MG PER DAY
     Route: 048
  3. IMIPRAMINE [Concomitant]

REACTIONS (2)
  - INSOMNIA [None]
  - MUSCLE SPASMS [None]
